FAERS Safety Report 9455215 (Version 1)
Quarter: 2013Q1

REPORT INFORMATION
  Report Type: Spontaneous
  Country: US (occurrence: None)
  Receive Date: 20121109
  Receipt Date: 20121109
  Transmission Date: 20140127
  Serious: Yes (Other)
  Sender: FDA-Public Use
  Company Number: 2012S1000008

PATIENT
  Sex: 0

DRUGS (2)
  1. CUBICIN [Suspect]
  2. INVANZ [Suspect]

REACTIONS (4)
  - Trismus [None]
  - Muscle disorder [None]
  - Drug interaction [None]
  - Neuropathy peripheral [None]
